FAERS Safety Report 11804877 (Version 1)
Quarter: 2015Q4

REPORT INFORMATION
  Report Type: Spontaneous
  Country: US (occurrence: US)
  Receive Date: 20151205
  Receipt Date: 20151205
  Transmission Date: 20160305
  Serious: No
  Sender: FDA-Public Use
  Company Number: US-GLAXOSMITHKLINE-US2015GSK163666

PATIENT
  Age: 52 Year
  Sex: Male

DRUGS (1)
  1. MEPRON [Suspect]
     Active Substance: ATOVAQUONE
     Indication: RENAL FAILURE
     Dosage: 750MG/5ML
     Dates: start: 20150819

REACTIONS (1)
  - Biopsy bone marrow [Unknown]

NARRATIVE: CASE EVENT DATE: 20151113
